FAERS Safety Report 21913428 (Version 2)
Quarter: 2023Q1

REPORT INFORMATION
  Report Type: Report from Study
  Country: CO (occurrence: CO)
  Receive Date: 20230125
  Receipt Date: 20230302
  Transmission Date: 20230417
  Serious: Yes (Hospitalization)
  Sender: FDA-Public Use
  Company Number: CO-002147023-NVSC2022CO223334

PATIENT

DRUGS (2)
  1. RUXOLITINIB [Suspect]
     Active Substance: RUXOLITINIB
     Indication: Myelofibrosis
     Dosage: UNK, Q12H (EVERY 12 HOURS)
     Route: 048
  2. RUXOLITINIB [Suspect]
     Active Substance: RUXOLITINIB
     Dosage: 30 MG, QD
     Route: 048

REACTIONS (6)
  - Abdominal pain [Unknown]
  - Inappropriate schedule of product administration [Unknown]
  - Discouragement [Unknown]
  - Pyrexia [Unknown]
  - Illness [Unknown]
  - Headache [Unknown]
